FAERS Safety Report 6001847-0 (Version None)
Quarter: 2008Q4

REPORT INFORMATION
  Report Type: 
  Country: None (occurrence: None)
  Receive Date: 20081215
  Receipt Date: 20081205
  Transmission Date: 20090506
  Serious: Yes (Hospitalization, Other)
  Sender: FDA-Public Use
  Company Number: US-ABBOTT-08P-163-0491625-00

PATIENT
  Sex: Male
  Weight: 127.12 kg

DRUGS (9)
  1. HUMIRA [Suspect]
     Indication: PSORIATIC ARTHROPATHY
     Route: 058
     Dates: start: 20050101, end: 20080701
  2. AMIODARONE HCL [Concomitant]
     Indication: ATRIAL FIBRILLATION
     Dosage: UNKNOWN
  3. PRAVASTATIN [Concomitant]
     Indication: BLOOD CHOLESTEROL INCREASED
     Dosage: UNKNOWN
  4. CAPTOPRIL [Concomitant]
     Indication: HYPERTENSION
     Dosage: UNKNOWN
  5. FUROSEMIDE [Concomitant]
     Indication: HYPERTENSION
     Dosage: UNKNOWN
  6. INSULIN DETEMIR [Concomitant]
     Indication: DIABETES MELLITUS
     Route: 058
  7. INSULIN ASPART [Concomitant]
     Indication: DIABETES MELLITUS
     Dosage: BEFORE MEALS
  8. ZOLPIDEM TARTRATE [Concomitant]
     Indication: SLEEP DISORDER
     Dosage: AS NEEDED
  9. METHOTREXATE [Concomitant]
     Indication: PSORIATIC ARTHROPATHY
     Dosage: UNKNOWN
     Dates: end: 20080701

REACTIONS (14)
  - ARTHRALGIA [None]
  - ASTHENIA [None]
  - BACK PAIN [None]
  - LIMB DISCOMFORT [None]
  - MUSCLE INJURY [None]
  - OSTEOMYELITIS [None]
  - PAIN IN EXTREMITY [None]
  - POSTOPERATIVE WOUND COMPLICATION [None]
  - PSORIASIS [None]
  - ROAD TRAFFIC ACCIDENT [None]
  - ROTATOR CUFF SYNDROME [None]
  - STAPHYLOCOCCAL INFECTION [None]
  - WOUND DEHISCENCE [None]
  - WOUND DRAINAGE [None]
